FAERS Safety Report 10157987 (Version 1)
Quarter: 2014Q2

REPORT INFORMATION
  Report Type: Spontaneous
  Country: US (occurrence: US)
  Receive Date: 20140507
  Receipt Date: 20140507
  Transmission Date: 20141212
  Serious: Yes (Other)
  Sender: FDA-Public Use
  Company Number: US-GLAXOSMITHKLINE-A1072234A

PATIENT
  Sex: Male

DRUGS (1)
  1. LAMICTAL [Suspect]
     Indication: CONVULSION
     Dosage: 100MG UNKNOWN
     Route: 065
     Dates: start: 20060221

REACTIONS (2)
  - Convulsion [Not Recovered/Not Resolved]
  - Drug dose omission [Not Recovered/Not Resolved]
